FAERS Safety Report 26190018 (Version 1)
Quarter: 2025Q4

REPORT INFORMATION
  Report Type: Spontaneous
  Country: CA (occurrence: CA)
  Receive Date: 20251223
  Receipt Date: 20251223
  Transmission Date: 20260117
  Serious: Yes (Hospitalization, Other)
  Sender: AUROBINDO
  Company Number: CA-AUROBINDO-AUR-APL-2025-065778

PATIENT
  Age: 82 Year
  Sex: Female

DRUGS (2)
  1. VANCOMYCIN HYDROCHLORIDE [Suspect]
     Active Substance: VANCOMYCIN HYDROCHLORIDE
     Indication: Postoperative wound infection
     Dosage: UNK
     Route: 065
  2. OFEV [Suspect]
     Active Substance: NINTEDANIB
     Indication: Idiopathic pulmonary fibrosis
     Dosage: 100 MILLIGRAM, TWO TIMES A DAY
     Route: 061

REACTIONS (7)
  - Renal failure [Not Recovered/Not Resolved]
  - Renal impairment [Not Recovered/Not Resolved]
  - Skin cancer [Not Recovered/Not Resolved]
  - Decreased appetite [Not Recovered/Not Resolved]
  - Wound dehiscence [Not Recovered/Not Resolved]
  - Postoperative wound infection [Not Recovered/Not Resolved]
  - Skin lesion [Not Recovered/Not Resolved]
